FAERS Safety Report 18471697 (Version 1)
Quarter: 2020Q4

REPORT INFORMATION
  Report Type: Report from Study
  Country: None (occurrence: US)
  Receive Date: 20201105
  Receipt Date: 20201105
  Transmission Date: 20210114
  Serious: Yes (Hospitalization, Other)
  Sender: FDA-Public Use
  Company Number: US-ABBVIE-20K-163-3606598-00

PATIENT
  Sex: Female
  Weight: 99.43 kg

DRUGS (1)
  1. RINVOQ [Suspect]
     Active Substance: UPADACITINIB
     Indication: RHEUMATOID ARTHRITIS
     Route: 048
     Dates: start: 202002

REACTIONS (4)
  - Hydrocephalus [Unknown]
  - Adverse drug reaction [Recovered/Resolved]
  - Cataract [Recovering/Resolving]
  - Glaucoma [Recovered/Resolved]

NARRATIVE: CASE EVENT DATE: 2020
